FAERS Safety Report 4590514-6 (Version None)
Quarter: 2005Q1

REPORT INFORMATION
  Report Type: 
  Country: None (occurrence: None)
  Receive Date: 20050218
  Receipt Date: 20050218
  Transmission Date: 20050727
  Serious: Yes (Other)
  Sender: FDA-Public Use
  Company Number: None

PATIENT
  Age: 70 Year
  Sex: Female
  Weight: 59.8748 kg

DRUGS (11)
  1. FEMARA [Suspect]
     Indication: BREAST CANCER
     Dosage: 1 X A DAY ORAL
     Route: 048
     Dates: start: 20040115, end: 20040420
  2. SYNTHROID [Concomitant]
  3. ACTONEL [Concomitant]
  4. ECOTRIN [Concomitant]
  5. VITAMIN C [Concomitant]
  6. CENTRUM SILIVER [Concomitant]
  7. CALTRATE +D [Concomitant]
  8. TYLENOL [Concomitant]
  9. CLARITIN [Concomitant]
  10. FLONASE [Concomitant]
  11. MIACALCIN [Concomitant]

REACTIONS (2)
  - CARDIAC FLUTTER [None]
  - FEELING ABNORMAL [None]
